FAERS Safety Report 16462364 (Version 1)
Quarter: 2019Q2

REPORT INFORMATION
  Report Type: Report from Study
  Country: IT (occurrence: IT)
  Receive Date: 20190621
  Receipt Date: 20190621
  Transmission Date: 20190711
  Serious: Yes (Other)
  Sender: FDA-Public Use
  Company Number: IT-BRISTOL-MYERS SQUIBB COMPANY-BMS-2019-057253

PATIENT
  Age: 71 Year
  Sex: Male

DRUGS (1)
  1. WARFARIN SODIUM. [Suspect]
     Active Substance: WARFARIN SODIUM
     Indication: ATRIAL FIBRILLATION
     Dosage: 1 DOSAGE FORM
     Route: 048

REACTIONS (6)
  - Subarachnoid haemorrhage [Not Recovered/Not Resolved]
  - Off label use [Unknown]
  - Coma [Not Recovered/Not Resolved]
  - Tongue biting [Not Recovered/Not Resolved]
  - Aphasia [Not Recovered/Not Resolved]
  - Clonus [Not Recovered/Not Resolved]

NARRATIVE: CASE EVENT DATE: 20190505
